FAERS Safety Report 5855723-4 (Version None)
Quarter: 2008Q3

REPORT INFORMATION
  Report Type: 
  Country: None (occurrence: None)
  Receive Date: 20080825
  Receipt Date: 20080818
  Transmission Date: 20090109
  Serious: Yes (Hospitalization)
  Sender: FDA-Public Use
  Company Number: GB-TEVA-168742ISR

PATIENT
  Age: 86 Year
  Sex: Male

DRUGS (2)
  1. ATENOLOL [Suspect]
     Indication: BLOOD PRESSURE INCREASED
     Route: 048
     Dates: end: 20080124
  2. BENDROFLUMETHIAZIDE [Suspect]
     Indication: BLOOD PRESSURE INCREASED
     Route: 048
     Dates: end: 20080124

REACTIONS (1)
  - JAUNDICE [None]
